FAERS Safety Report 10141893 (Version 2)
Quarter: 2014Q2

REPORT INFORMATION
  Report Type: Report from Study
  Country: CA (occurrence: CA)
  Receive Date: 20140429
  Receipt Date: 20140429
  Transmission Date: 20141212
  Serious: Yes (Other)
  Sender: FDA-Public Use
  Company Number: CA-ALEXION-A201200286

PATIENT
  Age: 64 Year
  Sex: Female

DRUGS (21)
  1. SOLIRIS 300MG [Suspect]
     Indication: PAROXYSMAL NOCTURNAL HAEMOGLOBINURIA
     Dosage: 600 MG, QW
     Route: 042
     Dates: start: 20111020, end: 20111110
  2. SOLIRIS 300MG [Suspect]
     Dosage: 900 MG, Q2W
     Route: 042
     Dates: start: 20111117
  3. IMOVANE [Concomitant]
     Dosage: 15 MG, QD
     Route: 048
  4. CELEXA [Concomitant]
     Dosage: 20 MG, QD
     Route: 048
  5. COUMADIN [Concomitant]
     Dosage: 5 MG, QD
     Route: 048
  6. FOLIC ACID [Concomitant]
     Dosage: 5 MG, QD
  7. VITAMIN D [Concomitant]
     Dosage: QD
  8. NITRO [Concomitant]
     Dosage: 40 MG, QD
     Route: 062
  9. PANTOLOC [Concomitant]
     Dosage: 40 MG, QD
  10. BENZOPROLOL [Concomitant]
     Dosage: 5 MG, QD
  11. LIPITOR [Concomitant]
     Dosage: 20 MG, QD
  12. RAMIPRIL [Concomitant]
     Dosage: 10 MG, QD
  13. PENTASA [Concomitant]
     Dosage: 500 MG, QD
  14. ACTONEL [Concomitant]
     Dosage: Q WEEK
  15. CLONAZEPAM [Concomitant]
     Dosage: QD
  16. CALCIUM [Concomitant]
     Dosage: 1000 MG, QD
  17. RALIVIA [Concomitant]
     Dosage: 300 MG, QD
  18. VITAMIN B12 [Concomitant]
     Dosage: Q MONTH
  19. GRAVOL [Concomitant]
     Dosage: PRN
  20. TYLENOL W/CODEINE NO. 3 [Concomitant]
     Dosage: PRN
  21. DOCUSATE SODIUM [Concomitant]
     Dosage: 1 TABLET, QD

REACTIONS (4)
  - Haemoglobin decreased [Unknown]
  - Chromaturia [Not Recovered/Not Resolved]
  - Pallor [Unknown]
  - Fatigue [Unknown]
